FAERS Safety Report 8096276-2 (Version None)
Quarter: 2012Q1

REPORT INFORMATION
  Report Type: 
  Country: None (occurrence: None)
  Receive Date: 20120129
  Receipt Date: 20111230
  Transmission Date: 20120608
  Serious: No
  Sender: FDA-Public Use
  Company Number: US-ABBOTT-12P-163-0888834-00

PATIENT
  Age: 55 Year
  Sex: Male

DRUGS (9)
  1. NEURONTIN [Concomitant]
     Indication: HYPOAESTHESIA
  2. HUMIRA [Suspect]
     Indication: ANKYLOSING SPONDYLITIS
     Dates: start: 20111116
  3. OXYCONTIN [Concomitant]
     Indication: PAIN
  4. ONDANSETRON HCL [Concomitant]
     Indication: PROPHYLAXIS OF NAUSEA AND VOMITING
  5. PHENERGAN [Concomitant]
     Indication: PROPHYLAXIS OF NAUSEA AND VOMITING
  6. INDOCIN [Concomitant]
     Indication: PRODUCT USED FOR UNKNOWN INDICATION
  7. NEURONTIN [Concomitant]
     Indication: BURNING SENSATION
  8. PAIN MEDICATIONS [Concomitant]
     Indication: PAIN
     Dosage: DAILY WITH ZOFRAN
  9. ONDANSETRON HCL [Concomitant]
     Indication: GASTROOESOPHAGEAL REFLUX DISEASE

REACTIONS (2)
  - MUSCLE SPASMS [None]
  - ABDOMINAL DISCOMFORT [None]
